FAERS Safety Report 13094995 (Version 1)
Quarter: 2017Q1

REPORT INFORMATION
  Report Type: Spontaneous
  Country: US (occurrence: US)
  Receive Date: 20170106
  Receipt Date: 20170106
  Transmission Date: 20170428
  Serious: No
  Sender: FDA-Public Use
  Company Number: US-GRANULES INDIA LIMITED-1061668

PATIENT
  Age: 41 Year
  Sex: Male
  Weight: 86.36 kg

DRUGS (3)
  1. METFORMIN HYDROCHLORIDE. [Suspect]
     Active Substance: METFORMIN HYDROCHLORIDE
     Indication: DIABETES MELLITUS
     Route: 048
  2. SIMVASTATIN. [Concomitant]
     Active Substance: SIMVASTATIN
  3. LISINOPRIL WITH HYDROCHLOROTHIAZIDE 20/25 [Concomitant]

REACTIONS (1)
  - Blood glucose increased [Unknown]
